FAERS Safety Report 24813522 (Version 1)
Quarter: 2025Q1

REPORT INFORMATION
  Report Type: Spontaneous
  Country: US (occurrence: US)
  Receive Date: 20250107
  Receipt Date: 20250107
  Transmission Date: 20250408
  Serious: Yes (Hospitalization)
  Sender: SYNDAX
  Company Number: US-SYNDAX PHARMACEUTICALS, INC.-2025US000005

PATIENT
  Age: 71 Year
  Sex: Female

DRUGS (2)
  1. REVUFORJ [Suspect]
     Active Substance: REVUMENIB CITRATE
     Indication: Leukaemia
     Dosage: 160 MILLIGRAM, BID
     Route: 048
     Dates: start: 20241221
  2. VENCLEXTA [Concomitant]
     Active Substance: VENETOCLAX
     Indication: Product used for unknown indication
     Route: 048
     Dates: start: 20241221

REACTIONS (2)
  - Nausea [Unknown]
  - Full blood count decreased [Unknown]
